FAERS Safety Report 8724902 (Version 2)
Quarter: 2015Q2

REPORT INFORMATION
  Report Type: Report from Study
  Country: US (occurrence: US)
  Receive Date: 20120815
  Receipt Date: 20150625
  Transmission Date: 20150821
  Serious: Yes (Hospitalization)
  Sender: FDA-Public Use
  Company Number: US-ROCHE-1100549

PATIENT
  Sex: Male

DRUGS (11)
  1. PHENERGAN [Concomitant]
     Active Substance: PROMETHAZINE HYDROCHLORIDE
  2. DOPAMINE [Concomitant]
     Active Substance: DOPAMINE\DOPAMINE HYDROCHLORIDE
     Route: 065
  3. ACTIVASE [Suspect]
     Active Substance: ALTEPLASE
     Indication: ANGINA UNSTABLE
     Route: 042
  4. HEPARIN [Concomitant]
     Active Substance: HEPARIN SODIUM
     Route: 042
  5. LOPRESSOR [Concomitant]
     Active Substance: METOPROLOL TARTRATE
     Route: 065
  6. NITROGLYCERINE [Concomitant]
     Active Substance: NITROGLYCERIN
     Route: 042
  7. ASPIRIN. [Concomitant]
     Active Substance: ASPIRIN
  8. NITROSTAT [Concomitant]
     Active Substance: NITROGLYCERIN
  9. TRIDIL [Concomitant]
     Active Substance: NITROGLYCERIN
     Route: 065
  10. MORPHINE [Concomitant]
     Active Substance: MORPHINE
  11. EPINEPHRINE. [Concomitant]
     Active Substance: EPINEPHRINE

REACTIONS (3)
  - Bradycardia [Unknown]
  - Pain [Unknown]
  - Ventricular extrasystoles [Unknown]
